FAERS Safety Report 7424965-9 (Version None)
Quarter: 2011Q2

REPORT INFORMATION
  Report Type: 
  Country: None (occurrence: None)
  Receive Date: 20110419
  Receipt Date: 20110217
  Transmission Date: 20111010
  Serious: Yes (Hospitalization, Other)
  Sender: FDA-Public Use
  Company Number: US-BAYER-201041675NA

PATIENT
  Age: 31 Year
  Sex: Female
  Weight: 66 kg

DRUGS (16)
  1. ETODOLAC [Concomitant]
     Dosage: UNK
     Dates: start: 20090101
  2. TRAMADOL HCL [Concomitant]
     Dosage: UNK
     Dates: start: 20080601
  3. CYCLOBENZAPRINE [Concomitant]
     Dosage: UNK
     Dates: start: 20081101
  4. HYDROCODONE BITARTRATE AND ACETAMINOPHEN [Concomitant]
     Indication: PAIN
     Dosage: UNK UNK, CONT
  5. NAPROXEN [Concomitant]
     Indication: INFLAMMATION
  6. IBUPROFEN [Concomitant]
     Dosage: UNK
     Dates: start: 20080101, end: 20100101
  7. SKELAXIN [Concomitant]
     Dosage: UNK
     Dates: start: 20081001
  8. DARVOCET [Concomitant]
     Indication: PAIN
     Dosage: UNK UNK, CONT
  9. YASMIN [Suspect]
     Indication: CONTRACEPTION
     Dosage: UNK
     Dates: start: 20010101, end: 20050101
  10. NAPROXEN [Concomitant]
     Indication: PAIN
     Dosage: 375 MG, CONT
     Dates: start: 20080101
  11. CIPROFLOXACIN [Concomitant]
     Dosage: UNK
     Dates: start: 20090901
  12. MEFOXIN [Concomitant]
     Dosage: UNK
     Dates: start: 20100601
  13. ERY-TAB [Concomitant]
     Dosage: UNK
     Dates: start: 20080601
  14. YAZ [Suspect]
     Indication: CONTRACEPTION
     Dosage: UNK UNK, UNK
     Route: 048
     Dates: start: 20061101, end: 20081215
  15. KEFLEX [Concomitant]
     Dosage: UNK
     Dates: start: 20070601
  16. MOTRIN [Concomitant]
     Indication: PAIN
     Dosage: UNK UNK, CONT

REACTIONS (15)
  - SKIN DISCOLOURATION [None]
  - MELAENA [None]
  - PAIN IN EXTREMITY [None]
  - MOBILITY DECREASED [None]
  - DEEP VEIN THROMBOSIS [None]
  - PULMONARY EMBOLISM [None]
  - ABDOMINAL PAIN [None]
  - CHOLELITHIASIS [None]
  - CRYING [None]
  - ABASIA [None]
  - CHOLECYSTITIS [None]
  - PALLOR [None]
  - PARAESTHESIA [None]
  - CHEST PAIN [None]
  - PAIN [None]
